FAERS Safety Report 24627000 (Version 2)
Quarter: 2025Q1

REPORT INFORMATION
  Report Type: Spontaneous
  Country: US (occurrence: US)
  Receive Date: 20241115
  Receipt Date: 20250123
  Transmission Date: 20250409
  Serious: Yes (Hospitalization)
  Sender: NEUROCRINE BIOSCIENCES
  Company Number: US-NEUROCRINE BIOSCIENCES INC.-2024NBI11167

PATIENT
  Sex: Male

DRUGS (1)
  1. INGREZZA [Suspect]
     Active Substance: VALBENAZINE
     Indication: Tardive dyskinesia
     Route: 065

REACTIONS (6)
  - Gallbladder enlargement [Recovered/Resolved]
  - Cholecystitis infective [Unknown]
  - Bladder disorder [Unknown]
  - Illness [Unknown]
  - Hernia [Recovered/Resolved]
  - Nightmare [Recovered/Resolved]
